FAERS Safety Report 7789776-3 (Version None)
Quarter: 2011Q3

REPORT INFORMATION
  Report Type: 
  Country: None (occurrence: None)
  Receive Date: 20110930
  Receipt Date: 20110301
  Transmission Date: 20111222
  Serious: No
  Sender: FDA-Public Use
  Company Number: US-ASTRAZENECA-2011SE11648

PATIENT
  Age: 47 Year
  Sex: Female

DRUGS (1)
  1. ARIMIDEX [Suspect]
     Route: 048

REACTIONS (4)
  - MENOPAUSE [None]
  - MYALGIA [None]
  - FEAR OF CROWDED PLACES [None]
  - HOT FLUSH [None]
